FAERS Safety Report 7030828-3 (Version None)
Quarter: 2010Q4

REPORT INFORMATION
  Report Type: 
  Country: None (occurrence: None)
  Receive Date: 20101006
  Receipt Date: 20100923
  Transmission Date: 20110411
  Serious: No
  Sender: FDA-Public Use
  Company Number: US-PFIZER INC-2010121875

PATIENT
  Sex: Female
  Weight: 56.689 kg

DRUGS (1)
  1. RELPAX [Suspect]
     Indication: MIGRAINE
     Dosage: 20 MG, AS NEEDED
     Route: 048
     Dates: start: 20100907, end: 20100907

REACTIONS (4)
  - CHEILITIS [None]
  - LIP PAIN [None]
  - LIP SWELLING [None]
  - STOMATITIS [None]
